FAERS Safety Report 5017693-0 (Version None)
Quarter: 2006Q2

REPORT INFORMATION
  Report Type: 
  Country: None (occurrence: None)
  Receive Date: 20060605
  Receipt Date: 20060523
  Transmission Date: 20061013
  Serious: Yes (Other)
  Sender: FDA-Public Use
  Company Number: PHEH2006US06794

PATIENT
  Sex: Female

DRUGS (2)
  1. SANDOSTATIN [Suspect]
     Indication: CARCINOID SYNDROME
     Dosage: UNK, QD
     Dates: start: 19970101, end: 20020101
  2. VITAMINS [Concomitant]

REACTIONS (3)
  - CHOLECYSTECTOMY [None]
  - DRUG INEFFECTIVE [None]
  - DYSPEPSIA [None]
